FAERS Safety Report 4709220-X (Version None)
Quarter: 2005Q3

REPORT INFORMATION
  Report Type: 
  Country: None (occurrence: None)
  Receive Date: 20050706
  Receipt Date: 20050519
  Transmission Date: 20060218
  Serious: Yes (Hospitalization)
  Sender: FDA-Public Use
  Company Number: RENA-11384

PATIENT
  Sex: Female

DRUGS (1)
  1. RENAGEL [Suspect]
     Indication: BLOOD PHOSPHORUS INCREASED
     Dosage: 2.4 G QD PO
     Route: 048
     Dates: start: 20050515, end: 20050517

REACTIONS (1)
  - LEUKOCYTOCLASTIC VASCULITIS [None]
